FAERS Safety Report 10183874 (Version 1)
Quarter: 2014Q2

REPORT INFORMATION
  Report Type: Spontaneous
  Country: IT (occurrence: IT)
  Receive Date: 20140520
  Receipt Date: 20140520
  Transmission Date: 20141212
  Serious: Yes (Death, Hospitalization)
  Sender: FDA-Public Use
  Company Number: IT-BAYER-2014-069919

PATIENT
  Age: 98 Year
  Sex: Male

DRUGS (1)
  1. CIPROFLOXACIN [Suspect]

REACTIONS (7)
  - Acquired haemophilia [Fatal]
  - Haematemesis [Fatal]
  - Haematuria [Fatal]
  - Anaemia [None]
  - Haemorrhage intracranial [Fatal]
  - Coma [Fatal]
  - Paralysis [None]
